FAERS Safety Report 8282379-6 (Version None)
Quarter: 2012Q2

REPORT INFORMATION
  Report Type: 
  Country: None (occurrence: None)
  Receive Date: 20120413
  Receipt Date: 20120405
  Transmission Date: 20120825
  Serious: Yes (Hospitalization)
  Sender: FDA-Public Use
  Company Number: US-BAYER-2011-105710

PATIENT
  Age: 22 Year
  Sex: Female
  Weight: 66 kg

DRUGS (8)
  1. LAXATIVE [Concomitant]
     Dosage: UNK
  2. YAZ [Suspect]
     Dosage: UNK
     Dates: start: 20070501, end: 20090701
  3. OXYCODONE HCL [Concomitant]
     Indication: PAIN
     Dosage: 5 MG, 1-2 TABLETS OVER 4-6 HOURS AS NEEDED.
  4. CYCLOBENAZPRINE [Concomitant]
     Dosage: 10 MG, QD
  5. ALBUTEROL [Concomitant]
     Dosage: 1-2 PUFFS EVERY 6 HOURS AS NEEDED
  6. IBUPROFEN [Concomitant]
     Dosage: 600 MG, PRN
  7. ASCORBIC ACID [Concomitant]
     Dosage: 1000 MG DAILY
  8. TYLENOL (CAPLET) [Concomitant]
     Indication: PAIN
     Dosage: 500 MG, PRN

REACTIONS (4)
  - PAIN [None]
  - CHOLECYSTITIS [None]
  - BILIARY COLIC [None]
  - INJURY [None]
